FAERS Safety Report 9332590 (Version 1)
Quarter: 2013Q2

REPORT INFORMATION
  Report Type: Spontaneous
  Country: US (occurrence: US)
  Receive Date: 20130606
  Receipt Date: 20130606
  Transmission Date: 20140414
  Serious: No
  Sender: FDA-Public Use
  Company Number: US-BAYER-2013-067266

PATIENT
  Sex: Male

DRUGS (3)
  1. BETASERON [Suspect]
     Dosage: 0.25 ML, QOD
     Route: 058
  2. HYDROCODONE [Concomitant]
  3. HOMATROPINE [HOMATROPINE] [Concomitant]

REACTIONS (1)
  - Drug ineffective [Unknown]
